FAERS Safety Report 6287908-X (Version None)
Quarter: 2009Q3

REPORT INFORMATION
  Report Type: 
  Country: None (occurrence: None)
  Receive Date: 20090729
  Receipt Date: 20090710
  Transmission Date: 20100115
  Serious: Yes (Other)
  Sender: FDA-Public Use
  Company Number: AT-JNJFOC-20090702932

PATIENT
  Sex: Female

DRUGS (5)
  1. DURAGESIC-100 [Suspect]
     Indication: DRUG USE FOR UNKNOWN INDICATION
     Dosage: DOSE: 2 X 100 UG/HR + 2 X 25 UG/HR PATCH
     Route: 062
  2. LOVENOX [Concomitant]
     Route: 065
  3. CATAPRESAN [Concomitant]
     Route: 065
  4. AMITRIPTYLINE HCL [Concomitant]
     Route: 065
  5. MYDOCLAM [Concomitant]
     Route: 065

REACTIONS (3)
  - DEVICE ADHESION ISSUE [None]
  - PANOPHTHALMITIS [None]
  - PRODUCT QUALITY ISSUE [None]
